FAERS Safety Report 9458421 (Version 1)
Quarter: 2013Q3

REPORT INFORMATION
  Report Type: Spontaneous
  Country: IT (occurrence: IT)
  Receive Date: 20130814
  Receipt Date: 20130814
  Transmission Date: 20140515
  Serious: Yes (Other)
  Sender: FDA-Public Use
  Company Number: PHHY2013IT086285

PATIENT
  Sex: Male

DRUGS (6)
  1. AMLODIPINE [Suspect]
     Dosage: 1 DF, QD
     Route: 048
     Dates: start: 20120701, end: 20130630
  2. OLMESARTAN MEDOXOMIL [Suspect]
     Dosage: 1 DF, QD
     Route: 048
     Dates: start: 20120701, end: 20130630
  3. RIOPAN [Concomitant]
  4. ACETYLSALICYLIC ACID [Concomitant]
  5. PANTOPRAZOLE [Concomitant]
  6. INDOMETACIN [Concomitant]

REACTIONS (2)
  - Hyponatraemia [Recovering/Resolving]
  - Syncope [Recovering/Resolving]
